FAERS Safety Report 11261545 (Version 1)
Quarter: 2015Q3

REPORT INFORMATION
  Report Type: Spontaneous
  Country: JP (occurrence: JP)
  Receive Date: 20150710
  Receipt Date: 20150710
  Transmission Date: 20151125
  Serious: Yes (Life-Threatening, Hospitalization, Other)
  Sender: FDA-Public Use
  Company Number: JP-BRISTOL-MYERS SQUIBB COMPANY-BMS-2015-044327

PATIENT
  Age: 36 Year
  Sex: Female

DRUGS (2)
  1. JANUVIA [Concomitant]
     Active Substance: SITAGLIPTIN PHOSPHATE
     Indication: PRODUCT USED FOR UNKNOWN INDICATION
     Route: 048
  2. METGLUCO [Suspect]
     Active Substance: METFORMIN HYDROCHLORIDE
     Indication: PRODUCT USED FOR UNKNOWN INDICATION
     Dosage: 42500 MG, UNK
     Route: 048

REACTIONS (10)
  - Colitis ischaemic [Unknown]
  - Circulatory collapse [Unknown]
  - Renal impairment [Unknown]
  - Hyperlactacidaemia [Unknown]
  - Toxicity to various agents [Unknown]
  - Hepatic function abnormal [Unknown]
  - Intentional overdose [Unknown]
  - Depressed level of consciousness [Unknown]
  - Hypotension [Unknown]
  - Metabolic acidosis [Unknown]
